FAERS Safety Report 13484122 (Version 2)
Quarter: 2020Q1

REPORT INFORMATION
  Report Type: Other
  Country: ES (occurrence: ES)
  Receive Date: 20170426
  Receipt Date: 20200120
  Transmission Date: 20200409
  Serious: Yes (Death, Life-Threatening, Hospitalization, Other)
  Sender: FDA-Public Use
  Company Number: ES-MLMSERVICE-20170412-0652489-1

PATIENT
  Sex: Female
  Weight: .71 kg

DRUGS (4)
  1. TEICOPLANIN [Concomitant]
     Active Substance: TEICOPLANIN
  2. GENTAMICIN. [Concomitant]
     Active Substance: GENTAMICIN
  3. AMPICILLIN (AMPICILLIN SODIUM) [Concomitant]
     Active Substance: AMPICILLIN SODIUM
  4. OXYGEN MEDICINAL [Suspect]
     Active Substance: OXYGEN
     Indication: PRODUCT USED FOR UNKNOWN INDICATION
     Route: 045

REACTIONS (2)
  - Pneumocephalus [Fatal]
  - Brain injury [Fatal]
